FAERS Safety Report 8080967-3 (Version None)
Quarter: 2012Q1

REPORT INFORMATION
  Report Type: 
  Country: None (occurrence: None)
  Receive Date: 20120130
  Receipt Date: 20120117
  Transmission Date: 20120608
  Serious: Yes (Hospitalization)
  Sender: FDA-Public Use
  Company Number: JP-MERCK-1110USA00519

PATIENT
  Age: 74 Year
  Sex: Male
  Weight: 69 kg

DRUGS (8)
  1. ASPIRIN [Concomitant]
     Indication: ANGINA PECTORIS
     Route: 048
     Dates: start: 20110303
  2. CRESTOR [Concomitant]
     Route: 048
     Dates: start: 20110303
  3. LANSOPRAZOLE [Concomitant]
     Route: 048
     Dates: start: 20110303
  4. PLAVIX [Concomitant]
     Indication: ACUTE CORONARY SYNDROME
     Route: 048
     Dates: start: 20110303
  5. ISOSORBIDE MONONITRATE [Concomitant]
     Route: 048
     Dates: start: 20110220
  6. JANUVIA [Suspect]
     Indication: DIABETES MELLITUS
     Route: 048
     Dates: start: 20110520, end: 20110920
  7. AMARYL [Concomitant]
     Indication: DIABETES MELLITUS
     Route: 048
     Dates: start: 20110222
  8. CARVEDILOL [Concomitant]
     Route: 048
     Dates: start: 20110220

REACTIONS (1)
  - INTERSTITIAL LUNG DISEASE [None]
